FAERS Safety Report 23539351 (Version 6)
Quarter: 2024Q4

REPORT INFORMATION
  Report Type: Spontaneous
  Country: IN (occurrence: IN)
  Receive Date: 20240219
  Receipt Date: 20241003
  Transmission Date: 20250114
  Serious: Yes (Other)
  Sender: PFIZER
  Company Number: IN-PFIZER INC-PV202200034975

PATIENT
  Age: 72 Year
  Sex: Female
  Weight: 68.4 kg

DRUGS (8)
  1. PALBOCICLIB [Suspect]
     Active Substance: PALBOCICLIB
     Indication: Chemotherapy
     Dosage: 125 MG, CYCLIC (1 TABLET PER DAY FOR 22 DAYS + THEN A GAP OF 7 DAYS)
     Route: 048
     Dates: start: 20220101
  2. PALBOCICLIB [Suspect]
     Active Substance: PALBOCICLIB
     Dosage: 125 MG, 1X/DAY (0-1-0 X 21 DAYS ON AND 7 DAY OFF)
     Route: 048
     Dates: start: 20220111
  3. PALBOCICLIB [Suspect]
     Active Substance: PALBOCICLIB
     Dosage: 125 MG, 1X/DAY (0-1-0 X 21 DAYS ON AND 7 DAY OFF)
     Route: 048
  4. LETROZOLE [Concomitant]
     Active Substance: LETROZOLE
     Dosage: 1-0-0 X DAILY X 6 MONTHS
     Dates: start: 20220101
  5. GEMCAL [CALCITRIOL;CALCIUM CARBONATE;ZINC] [Concomitant]
     Dosage: 1-0-0 ALT/DAY
     Dates: start: 20220101
  6. ESSENTRA [Concomitant]
     Dosage: 120 MG
     Dates: start: 20220101
  7. NEUKINE [Concomitant]
     Dosage: 300 MG
  8. PREDNISOLONE [Concomitant]
     Active Substance: PREDNISOLONE
     Dosage: 10 MG

REACTIONS (16)
  - Red blood cell count decreased [Unknown]
  - Haemoglobin decreased [Not Recovered/Not Resolved]
  - Haematocrit decreased [Not Recovered/Not Resolved]
  - Critical illness [Unknown]
  - Neutrophil count decreased [Unknown]
  - Mean cell volume increased [Not Recovered/Not Resolved]
  - Mean cell haemoglobin increased [Not Recovered/Not Resolved]
  - White blood cell count decreased [Unknown]
  - Neutrophil percentage decreased [Unknown]
  - Lymphocyte percentage increased [Unknown]
  - Neoplasm progression [Unknown]
  - Diastolic dysfunction [Unknown]
  - Product physical issue [Unknown]
  - Lymphocyte count decreased [Unknown]
  - Blood uric acid abnormal [Unknown]
  - Red cell distribution width increased [Unknown]

NARRATIVE: CASE EVENT DATE: 20220620
